FAERS Safety Report 18942733 (Version 2)
Quarter: 2021Q1

REPORT INFORMATION
  Report Type: Report from Study
  Country: None (occurrence: MX)
  Receive Date: 20210225
  Receipt Date: 20210227
  Transmission Date: 20210420
  Serious: Yes (Hospitalization, Other)
  Sender: FDA-Public Use
  Company Number: MX-ABBVIE-21P-107-3784912-00

PATIENT
  Age: 82 Year
  Sex: Female
  Weight: 48 kg

DRUGS (8)
  1. ELIQUIS [Concomitant]
     Active Substance: APIXABAN
     Indication: PRODUCT USED FOR UNKNOWN INDICATION
     Dosage: DAILY DOSE 2 TABLET ( 1 TABLET IN THE MORNING AND ANOTHER AT NIGHT)
     Route: 065
  2. DEPAKENE [Suspect]
     Active Substance: VALPROIC ACID
     Dosage: DAILY DOSE 750 MILLIGRAM
     Route: 065
     Dates: start: 202011
  3. MICCIL [Concomitant]
     Dosage: DAILY DOSE 2 TABLET
     Route: 048
     Dates: start: 20210215
  4. ROGASTRIL [Concomitant]
     Indication: PRODUCT USED FOR UNKNOWN INDICATION
     Dosage: DAILY DOSE 1 TABLET (ONE IN THE MORNING)
     Route: 065
  5. DEPAKENE [Suspect]
     Active Substance: VALPROIC ACID
     Indication: SEIZURE
     Dosage: DAILY DOSE 250 MILLIGRAM
     Route: 065
     Dates: start: 202001, end: 202011
  6. MICCIL [Concomitant]
     Indication: PRODUCT USED FOR UNKNOWN INDICATION
     Dosage: DAILY DOSE 3 TABLET
     Route: 065
     Dates: start: 20210211, end: 20210214
  7. LEVETIRACETAM. [Concomitant]
     Active Substance: LEVETIRACETAM
     Indication: PRODUCT USED FOR UNKNOWN INDICATION
     Dosage: DAILY DOSE 1000 MILLIGRAM (ONE TABLET IN  THE MORNING AND ONE IN THE EVENING)
     Route: 065
  8. SIG [Concomitant]
     Indication: PRODUCT USED FOR UNKNOWN INDICATION
     Dosage: DAILY DOSE 1 TABLET, , HALF A TABLET IN THE MORNING AND HALF AT NIGHT
     Route: 065

REACTIONS (11)
  - Peripheral swelling [Recovered/Resolved]
  - Drug ineffective [Not Recovered/Not Resolved]
  - Wrong technique in product usage process [Not Recovered/Not Resolved]
  - Seizure [Not Recovered/Not Resolved]
  - Product quality issue [Unknown]
  - Pulmonary oedema [Recovered/Resolved]
  - Fluid retention [Recovered/Resolved]
  - Fluid retention [Recovered/Resolved]
  - Aphasia [Not Recovered/Not Resolved]
  - Hemiplegia [Not Recovered/Not Resolved]
  - Cough [Unknown]

NARRATIVE: CASE EVENT DATE: 2020
